FAERS Safety Report 7768692-7 (Version None)
Quarter: 2011Q3

REPORT INFORMATION
  Report Type: 
  Country: None (occurrence: None)
  Receive Date: 20110922
  Receipt Date: 20100418
  Transmission Date: 20111222
  Serious: Yes (Other)
  Sender: FDA-Public Use
  Company Number: US-ASTRAZENECA-2009SE18074

PATIENT
  Age: 53 Year
  Sex: Female
  Weight: 86.6 kg

DRUGS (13)
  1. LEXAPRO [Concomitant]
     Indication: DEPRESSION
     Dates: start: 20050101
  2. ATENOLOL [Concomitant]
     Dosage: 25-50 MG
     Dates: start: 20050419
  3. ZELNORM [Concomitant]
     Dates: start: 20050421
  4. SEROQUEL [Suspect]
     Indication: SCHIZOPHRENIA
     Route: 048
     Dates: start: 20050419
  5. SEROQUEL [Suspect]
     Indication: SLEEP DISORDER
     Route: 048
     Dates: start: 20050419
  6. DICYCLOMINE [Concomitant]
     Dates: start: 20050411
  7. LAMOTRIGINE [Concomitant]
     Indication: SCHIZOPHRENIA
     Dates: start: 20060101
  8. NEXIUM [Concomitant]
     Dates: start: 20050531
  9. SEROQUEL [Suspect]
     Dosage: 25-300 MG
     Route: 048
     Dates: start: 20050101
  10. SEROQUEL [Suspect]
     Dosage: 25-300 MG
     Route: 048
     Dates: start: 20050101
  11. SEROQUEL [Suspect]
     Indication: ANXIETY
     Route: 048
     Dates: start: 20050419
  12. SEROQUEL [Suspect]
     Dosage: 25-300 MG
     Route: 048
     Dates: start: 20050101
  13. LIPITOR [Concomitant]
     Dates: start: 20050623

REACTIONS (5)
  - TYPE 2 DIABETES MELLITUS [None]
  - BLOOD TRIGLYCERIDES INCREASED [None]
  - OBESITY [None]
  - PANCREATITIS [None]
  - METABOLIC SYNDROME [None]
